FAERS Safety Report 5132462-9 (Version None)
Quarter: 2006Q4

REPORT INFORMATION
  Report Type: 
  Country: None (occurrence: None)
  Receive Date: 20061017
  Receipt Date: 20061002
  Transmission Date: 20070319
  Serious: Yes (Hospitalization)
  Sender: FDA-Public Use
  Company Number: 230873

PATIENT
  Age: 46 Year
  Sex: 0

DRUGS (6)
  1. AVASTIN [Suspect]
     Indication: COLON CANCER
     Dosage: 5 MG/KG, Q2W, INTRAVENOUS
     Route: 042
     Dates: start: 20051116
  2. OXALIPLATIN [Suspect]
     Indication: COLON CANCER
     Dosage: 85 MG/M2, Q2W, INTRAVENOUS
     Route: 042
     Dates: start: 20051116
  3. LEUCOVORIN (LEUCOVORIN CALCIUM) [Suspect]
     Indication: COLON CANCER
     Dosage: 400 MG/M2, Q2W, INTRAVENOUS
     Route: 042
     Dates: start: 20051116
  4. FLUOROURACIL [Suspect]
     Indication: COLON CANCER
     Dosage: 400 MG/M2, SINGLE, IV BOLUS; SEE IMAGE
     Route: 040
     Dates: start: 20051116, end: 20051116
  5. FLUOROURACIL [Suspect]
     Indication: COLON CANCER
     Dosage: 400 MG/M2, SINGLE, IV BOLUS; SEE IMAGE
     Route: 040
     Dates: start: 20051116
  6. WARFARIN SODIUM [Concomitant]

REACTIONS (7)
  - ABDOMINAL PAIN [None]
  - BLOOD CULTURE POSITIVE [None]
  - CATHETER RELATED INFECTION [None]
  - INFECTION [None]
  - KLEBSIELLA INFECTION [None]
  - MALAISE [None]
  - PAIN [None]
